FAERS Safety Report 4782102-3 (Version None)
Quarter: 2005Q3

REPORT INFORMATION
  Report Type: 
  Country: None (occurrence: None)
  Receive Date: 20050928
  Receipt Date: 20050730
  Transmission Date: 20060218
  Serious: Yes (Death, Disabling)
  Sender: FDA-Public Use
  Company Number: US-MERCK-0508USA00094

PATIENT
  Age: 72 Year
  Sex: Male
  Weight: 97 kg

DRUGS (3)
  1. CANCIDAS [Suspect]
     Indication: SEPSIS
     Route: 042
     Dates: start: 20050729, end: 20050729
  2. CANCIDAS [Suspect]
     Route: 042
     Dates: start: 20050730, end: 20050807
  3. DIFLUCAN [Concomitant]
     Route: 065
     Dates: end: 20050701

REACTIONS (8)
  - CARDIAC FAILURE [None]
  - HAEMATOCRIT DECREASED [None]
  - HAEMOGLOBIN DECREASED [None]
  - MULTI-ORGAN FAILURE [None]
  - RENAL FAILURE [None]
  - RESPIRATORY FAILURE [None]
  - SEPSIS [None]
  - WRONG TECHNIQUE IN DRUG USAGE PROCESS [None]
